FAERS Safety Report 14625248 (Version 1)
Quarter: 2018Q1

REPORT INFORMATION
  Report Type: Report from Study
  Country: US (occurrence: AR)
  Receive Date: 20180312
  Receipt Date: 20180312
  Transmission Date: 20180509
  Serious: Yes (Death, Hospitalization, Other)
  Sender: FDA-Public Use
  Company Number: US-SUNOVION-2018SUN000890

PATIENT
  Sex: Male

DRUGS (1)
  1. INDACATEROL AND GLYCOPYRROLATE [Suspect]
     Active Substance: GLYCOPYRROLATE\INDACATEROL MALEATE
     Indication: CHRONIC OBSTRUCTIVE PULMONARY DISEASE
     Dosage: UNK, BID
     Route: 065
     Dates: start: 2014

REACTIONS (7)
  - Cardio-respiratory arrest [Fatal]
  - Ischaemic cardiomyopathy [Unknown]
  - Infarction [Unknown]
  - Cerebrovascular accident [Unknown]
  - Decubitus ulcer [Unknown]
  - Quadriplegia [Unknown]
  - Drug prescribing error [Unknown]
